FAERS Safety Report 5956675-9 (Version None)
Quarter: 2008Q4

REPORT INFORMATION
  Report Type: 
  Country: None (occurrence: None)
  Receive Date: 20081117
  Receipt Date: 20081117
  Transmission Date: 20090506
  Serious: Yes (Disabling)
  Sender: FDA-Public Use
  Company Number: None

PATIENT
  Sex: Female
  Weight: 72.5755 kg

DRUGS (1)
  1. CHANTIX [Suspect]
     Indication: SMOKING CESSATION THERAPY
     Dosage: (1) .5 MG FOR WEEK 1 PER DAY MOUTH;  (1) 1 MG FOR 7 WEEKS 1 PER DAY MOUTH
     Route: 048
     Dates: start: 20070709, end: 20070826

REACTIONS (1)
  - MULTIPLE SCLEROSIS [None]
